FAERS Safety Report 5120152-8 (Version None)
Quarter: 2006Q3

REPORT INFORMATION
  Report Type: 
  Country: None (occurrence: None)
  Receive Date: 20060928
  Receipt Date: 20060913
  Transmission Date: 20061208
  Serious: Yes (Other)
  Sender: FDA-Public Use
  Company Number: 14820

PATIENT
  Age: 67 Year

DRUGS (1)
  1. MITOMYCIN [Suspect]

REACTIONS (1)
  - CYSTITIS HAEMORRHAGIC [None]
